FAERS Safety Report 11825551 (Version 2)
Quarter: 2016Q1

REPORT INFORMATION
  Report Type: Spontaneous
  Country: US (occurrence: US)
  Receive Date: 20151211
  Receipt Date: 20160202
  Transmission Date: 20160525
  Serious: No
  Sender: FDA-Public Use
  Company Number: US-JNJFOC-20150603881

PATIENT
  Age: 81 Year
  Sex: Female

DRUGS (7)
  1. WARFARIN [Suspect]
     Active Substance: WARFARIN
     Indication: PRODUCT USED FOR UNKNOWN INDICATION
     Route: 065
  2. IMBRUVICA [Suspect]
     Active Substance: IBRUTINIB
     Indication: CHRONIC LYMPHOCYTIC LEUKAEMIA
     Route: 048
     Dates: start: 20141219
  3. ELIQUIS [Concomitant]
     Active Substance: APIXABAN
  4. ONDANSETRON [Concomitant]
     Active Substance: ONDANSETRON
  5. ALEVE [Concomitant]
     Active Substance: NAPROXEN SODIUM
  6. POTASSIUM [Concomitant]
     Active Substance: POTASSIUM
  7. ZOFRAN [Concomitant]
     Active Substance: ONDANSETRON HYDROCHLORIDE

REACTIONS (11)
  - Nausea [Unknown]
  - Swollen tongue [Unknown]
  - White blood cell count increased [Recovered/Resolved]
  - Contusion [Unknown]
  - Blood pressure fluctuation [Unknown]
  - Rash [Unknown]
  - Incorrect dose administered [Unknown]
  - Injection site pain [Unknown]
  - Asthenia [Unknown]
  - Weight increased [Unknown]
  - Injection site rash [Unknown]

NARRATIVE: CASE EVENT DATE: 20141219
